FAERS Safety Report 19170368 (Version 1)
Quarter: 2021Q2

REPORT INFORMATION
  Report Type: Report from Study
  Country: US (occurrence: US)
  Receive Date: 20210422
  Receipt Date: 20210422
  Transmission Date: 20210717
  Serious: Yes (Death)
  Sender: FDA-Public Use
  Company Number: US-TAIHO ONCOLOGY  INC-EU-2021-01182

PATIENT
  Age: 61 Year
  Sex: Male
  Weight: 134.38 kg

DRUGS (3)
  1. PERCOCET [Suspect]
     Active Substance: ACETAMINOPHEN\OXYCODONE HYDROCHLORIDE
     Indication: PAIN
     Dosage: PILLS GIVEN TO PARAMEDICS
     Dates: start: 20210414, end: 20210415
  2. LONSURF [Suspect]
     Active Substance: TIPIRACIL HYDROCHLORIDE\TRIFLURIDINE
     Indication: PRODUCT USED FOR UNKNOWN INDICATION
     Dosage: CYCLE 1, CURRENT CYCLE UNKNOWN
     Route: 048
     Dates: start: 20201012, end: 2021
  3. LONSURF [Suspect]
     Active Substance: TIPIRACIL HYDROCHLORIDE\TRIFLURIDINE
     Dosage: CYCLE UNKNOWN
     Route: 048
     Dates: start: 20210329

REACTIONS (8)
  - Fall [Unknown]
  - Tremor [Unknown]
  - Abdominal discomfort [Unknown]
  - Infection [Unknown]
  - Asthenia [Unknown]
  - Death [Fatal]
  - Skin discolouration [Unknown]
  - Disease progression [Unknown]

NARRATIVE: CASE EVENT DATE: 20210414
